FAERS Safety Report 5195602-1 (Version None)
Quarter: 2007Q1

REPORT INFORMATION
  Report Type: 
  Country: None (occurrence: None)
  Receive Date: 20070102
  Receipt Date: 20061226
  Transmission Date: 20070707
  Serious: Yes (Life-Threatening)
  Sender: FDA-Public Use
  Company Number: FR-AVENTIS-200614308FR

PATIENT
  Age: 49 Year
  Sex: Female

DRUGS (4)
  1. LASILIX                            /00032601/ [Suspect]
     Indication: ACUTE PULMONARY OEDEMA
     Dates: start: 20061030, end: 20061101
  2. OFLOCET                            /00731801/ [Suspect]
     Indication: FASCIITIS
     Route: 048
     Dates: start: 20061013, end: 20061103
  3. DALACINE [Suspect]
     Indication: FASCIITIS
     Route: 048
     Dates: start: 20061012, end: 20061103
  4. GENTAMICIN [Suspect]
     Indication: FASCIITIS
     Route: 042
     Dates: start: 20061013, end: 20061024

REACTIONS (3)
  - NEUROLOGICAL SYMPTOM [None]
  - RENAL FAILURE ACUTE [None]
  - STEVENS-JOHNSON SYNDROME [None]
